FAERS Safety Report 6668977-1 (Version None)
Quarter: 2010Q2

REPORT INFORMATION
  Report Type: 
  Country: None (occurrence: None)
  Receive Date: 20100402
  Receipt Date: 20100324
  Transmission Date: 20101027
  Serious: Yes (Other)
  Sender: FDA-Public Use
  Company Number: 2010SP012670

PATIENT
  Age: 5 Year
  Sex: Female
  Weight: 18.5 kg

DRUGS (1)
  1. CLARITIN [Suspect]
     Indication: DERMATITIS ALLERGIC
     Dosage: PO
     Route: 048

REACTIONS (2)
  - BLADDER CANCER [None]
  - HAEMATURIA [None]
